FAERS Safety Report 12931114 (Version 1)
Quarter: 2016Q4

REPORT INFORMATION
  Report Type: Spontaneous
  Country: US (occurrence: US)
  Receive Date: 20161110
  Receipt Date: 20161110
  Transmission Date: 20170207
  Serious: No
  Sender: FDA-Public Use
  Company Number: US-JAZZ-2016-US-017837

PATIENT
  Age: 63 Year
  Sex: Female

DRUGS (17)
  1. XYREM [Suspect]
     Active Substance: SODIUM OXYBATE
     Indication: NARCOLEPSY
     Dosage: 2.25 G, BID
     Route: 048
     Dates: start: 201510, end: 201510
  2. LORATADINE. [Concomitant]
     Active Substance: LORATADINE
  3. XYREM [Suspect]
     Active Substance: SODIUM OXYBATE
     Indication: CATAPLEXY
     Dosage: 3 G, BID
     Route: 048
     Dates: start: 201510, end: 201511
  4. LOSARTAN POTASSIUM. [Concomitant]
     Active Substance: LOSARTAN POTASSIUM
  5. CALCIUM LACTATE [Concomitant]
     Active Substance: CALCIUM LACTATE
  6. IRON [Concomitant]
     Active Substance: IRON
  7. JUBLIA [Concomitant]
     Active Substance: EFINACONAZOLE
  8. NAPROXEN SODIUM. [Concomitant]
     Active Substance: NAPROXEN SODIUM
  9. IBUPROFEN. [Concomitant]
     Active Substance: IBUPROFEN
  10. DOCUSATE SODIUM. [Concomitant]
     Active Substance: DOCUSATE SODIUM
  11. PREMARIN [Concomitant]
     Active Substance: ESTROGENS, CONJUGATED
  12. MULTIVITAMIN [Concomitant]
     Active Substance: VITAMINS
  13. XYREM [Suspect]
     Active Substance: SODIUM OXYBATE
     Dosage: 3.75 G, BID
     Route: 048
     Dates: start: 201511
  14. ALLEGRA-D [Concomitant]
     Active Substance: FEXOFENADINE\PSEUDOEPHEDRINE
  15. ROLAIDS [Concomitant]
     Active Substance: CALCIUM CARBONATE\MAGNESIUM HYDROXIDE
  16. REQUIP XL [Concomitant]
     Active Substance: ROPINIROLE HYDROCHLORIDE
  17. TUMS EX [Concomitant]
     Active Substance: CALCIUM CARBONATE

REACTIONS (2)
  - Cyst removal [Unknown]
  - Scar excision [Unknown]

NARRATIVE: CASE EVENT DATE: 20160913
